FAERS Safety Report 5841687-6 (Version None)
Quarter: 2008Q3

REPORT INFORMATION
  Report Type: 
  Country: None (occurrence: None)
  Receive Date: 20080811
  Receipt Date: 20080811
  Transmission Date: 20090109
  Serious: Yes (Hospitalization)
  Sender: FDA-Public Use
  Company Number: None

PATIENT
  Sex: Female
  Weight: 56.6996 kg

DRUGS (2)
  1. ACTONEL [Suspect]
     Indication: BONE DENSITY DECREASED
     Dosage: ONE TIME USE ONLY
     Dates: start: 20071220, end: 20071220
  2. ACTONEL [Concomitant]

REACTIONS (3)
  - MOTOR DYSFUNCTION [None]
  - MOVEMENT DISORDER [None]
  - PAIN [None]
